FAERS Safety Report 6638138-0 (Version None)
Quarter: 2010Q1

REPORT INFORMATION
  Report Type: 
  Country: None (occurrence: None)
  Receive Date: 20100301
  Receipt Date: 20090817
  Transmission Date: 20100710
  Serious: Yes (Other)
  Sender: FDA-Public Use
  Company Number: ALA_00346_2009

PATIENT
  Sex: Female

DRUGS (7)
  1. REGLAN [Suspect]
     Indication: SUPPRESSED LACTATION
     Dosage: 10 MGEVERY 6-8 HOURS, ORAL; SEE IMAGE
     Route: 048
     Dates: start: 20090626, end: 20090801
  2. REGLAN [Suspect]
     Indication: SUPPRESSED LACTATION
     Dosage: 10 MGEVERY 6-8 HOURS, ORAL; SEE IMAGE
     Route: 048
     Dates: start: 20090801, end: 20090801
  3. REGLAN [Suspect]
     Indication: SUPPRESSED LACTATION
     Dosage: 10 MGEVERY 6-8 HOURS, ORAL; SEE IMAGE
     Route: 048
     Dates: start: 20090801, end: 20090801
  4. REGLAN [Suspect]
     Indication: SUPPRESSED LACTATION
     Dosage: 10 MGEVERY 6-8 HOURS, ORAL; SEE IMAGE
     Route: 048
     Dates: start: 20090801, end: 20090811
  5. REGLAN [Suspect]
     Indication: SUPPRESSED LACTATION
     Dosage: 10 MGEVERY 6-8 HOURS, ORAL; SEE IMAGE
     Route: 048
     Dates: start: 20090814, end: 20090817
  6. REGLAN [Suspect]
     Indication: SUPPRESSED LACTATION
     Dosage: 10 MGEVERY 6-8 HOURS, ORAL; SEE IMAGE
     Route: 048
     Dates: start: 20090817, end: 20090817
  7. PROTONIX [Concomitant]

REACTIONS (4)
  - AKATHISIA [None]
  - DEPRESSION [None]
  - OFF LABEL USE [None]
  - SOMATIC HALLUCINATION [None]
